FAERS Safety Report 15759107 (Version 2)
Quarter: 2019Q2

REPORT INFORMATION
  Report Type: Spontaneous
  Country: US (occurrence: US)
  Receive Date: 20181226
  Receipt Date: 20190430
  Transmission Date: 20190711
  Serious: No
  Sender: FDA-Public Use
  Company Number: US-SHIRE-US201849608

PATIENT
  Age: 40 Year
  Sex: Female

DRUGS (3)
  1. NATPARA (PARATHYROID HORMONE) [Suspect]
     Active Substance: PARATHYROID HORMONE
     Indication: PARATHYROIDECTOMY
     Dosage: 50 ?G, 1X/DAY:QD
     Route: 058
  2. CALCIUM [Concomitant]
     Active Substance: CALCIUM
     Indication: PRODUCT USED FOR UNKNOWN INDICATION
  3. NATPARA (PARATHYROID HORMONE) [Suspect]
     Active Substance: PARATHYROID HORMONE
     Dosage: 75 MICROGRAM, 1X/DAY:QD
     Route: 058

REACTIONS (4)
  - Pain [Recovered/Resolved]
  - Anxiety [Recovered/Resolved]
  - Blood calcium decreased [Not Recovered/Not Resolved]
  - Feeling abnormal [Recovered/Resolved]

NARRATIVE: CASE EVENT DATE: 201812
